FAERS Safety Report 6977588-X (Version None)
Quarter: 2010Q3

REPORT INFORMATION
  Report Type: 
  Country: None (occurrence: None)
  Receive Date: 20100913
  Receipt Date: 20100831
  Transmission Date: 20110219
  Serious: Yes (Hospitalization)
  Sender: FDA-Public Use
  Company Number: US-BIOGENIDEC-2010BI030569

PATIENT
  Age: 49 Year
  Sex: Female

DRUGS (1)
  1. TYSABRI [Suspect]
     Indication: MULTIPLE SCLEROSIS
     Route: 042
     Dates: start: 20070315

REACTIONS (6)
  - BLEPHAROSPASM [None]
  - HYPOAESTHESIA [None]
  - JOINT SWELLING [None]
  - NERVE INJURY [None]
  - SPINAL DISORDER [None]
  - SPINAL FRACTURE [None]
